FAERS Safety Report 8084071-X (Version None)
Quarter: 2012Q1

REPORT INFORMATION
  Report Type: 
  Country: None (occurrence: None)
  Receive Date: 20120128
  Receipt Date: 20110127
  Transmission Date: 20120608
  Serious: No
  Sender: FDA-Public Use
  Company Number: US-ABBOTT-11P-163-0701490-00

PATIENT
  Sex: Female

DRUGS (1)
  1. HUMIRA [Suspect]
     Indication: PSORIASIS
     Route: 058
     Dates: start: 20101123

REACTIONS (4)
  - DIZZINESS [None]
  - MIGRAINE WITH AURA [None]
  - VISUAL IMPAIRMENT [None]
  - PARAESTHESIA [None]
